FAERS Safety Report 8584992-5 (Version None)
Quarter: 2012Q3

REPORT INFORMATION
  Report Type: 
  Country: None (occurrence: None)
  Receive Date: 20120810
  Receipt Date: 20120807
  Transmission Date: 20120928
  Serious: Yes (Other)
  Sender: FDA-Public Use
  Company Number: US-PFIZER INC-2012192569

PATIENT

DRUGS (1)
  1. PREMARIN [Suspect]
     Dosage: UNK
     Dates: start: 19780101

REACTIONS (2)
  - MIGRAINE [None]
  - HEPATITIS C [None]
